FAERS Safety Report 16177266 (Version 2)
Quarter: 2019Q2

REPORT INFORMATION
  Report Type: Spontaneous
  Country: BE (occurrence: BE)
  Receive Date: 20190410
  Receipt Date: 20190426
  Transmission Date: 20190711
  Serious: Yes (Other)
  Sender: FDA-Public Use
  Company Number: BE-ROCHE-2298619

PATIENT
  Age: 75 Year
  Sex: Female

DRUGS (3)
  1. SPIRONOLACTONE. [Concomitant]
     Active Substance: SPIRONOLACTONE
  2. LEUKERAN [Suspect]
     Active Substance: CHLORAMBUCIL
     Indication: CRYOGLOBULINAEMIA
     Route: 065
     Dates: start: 201811
  3. GAZYVARO [Suspect]
     Active Substance: OBINUTUZUMAB
     Indication: CRYOGLOBULINAEMIA
     Route: 042
     Dates: start: 201811

REACTIONS (5)
  - Off label use [Unknown]
  - Intentional product use issue [Unknown]
  - Leukopenia [Unknown]
  - Product administration error [Unknown]
  - Cryoglobulinaemia [Unknown]

NARRATIVE: CASE EVENT DATE: 201811
